FAERS Safety Report 8815715 (Version 1)
Quarter: 2012Q4

REPORT INFORMATION
  Report Type: 
  Country: US (occurrence: US)
  Receive Date: 20120928
  Receipt Date: 20120928
  Transmission Date: 20130627
  Serious: No
  Sender: FDA-Public Use
  Company Number: US-VERTEX PHARMACEUTICAL INC.-2012-020423

PATIENT
  Sex: Male
  Weight: 109.3 kg

DRUGS (5)
  1. VX-950 [Suspect]
     Indication: HEPATITIS C
     Dosage: 750 mg, tid
     Route: 048
     Dates: start: 20120705
  2. PEGASYS [Concomitant]
     Indication: HEPATITIS C
     Dosage: 150 ?g, UNK
     Route: 058
     Dates: start: 20120705
  3. RIBAPAK [Concomitant]
     Indication: HEPATITIS C
     Dosage: 600 mg, bid
  4. CELEBREX [Concomitant]
     Dosage: UNK, prn
  5. ACETAMINOPHEN W/HYDROCODONE [Concomitant]
     Dosage: UNK, prn

REACTIONS (3)
  - Dry mouth [Unknown]
  - Oral pain [Unknown]
  - Chapped lips [Unknown]
